FAERS Safety Report 12191381 (Version 1)
Quarter: 2016Q1

REPORT INFORMATION
  Report Type: Spontaneous
  Country: US (occurrence: US)
  Receive Date: 20160318
  Receipt Date: 20160318
  Transmission Date: 20160526
  Serious: Yes (Other)
  Sender: FDA-Public Use
  Company Number: US-PFIZER INC-2016152655

PATIENT
  Age: 41 Year
  Sex: Female

DRUGS (2)
  1. ACTH [Concomitant]
     Active Substance: CORTICOTROPIN
     Indication: LYMPHOCYTIC LYMPHOMA
     Dosage: 2565 MG IN 30 DAYS, UNK
  2. CORTISONE ACETATE. [Suspect]
     Active Substance: CORTISONE ACETATE
     Indication: LYMPHOCYTIC LYMPHOMA
     Dosage: 1300 MG TOTAL, UNK
     Dates: start: 19510303, end: 19510313

REACTIONS (4)
  - Paranoia [Recovered/Resolved]
  - Hallucination [Recovered/Resolved]
  - Mental disorder [Recovered/Resolved]
  - Illusion [Recovered/Resolved]

NARRATIVE: CASE EVENT DATE: 19510312
